FAERS Safety Report 4867416-0 (Version None)
Quarter: 2005Q4

REPORT INFORMATION
  Report Type: 
  Country: None (occurrence: None)
  Receive Date: 20051222
  Receipt Date: 20051215
  Transmission Date: 20060501
  Serious: Yes (Death)
  Sender: FDA-Public Use
  Company Number: USA-2005-0021950

PATIENT
  Age: 49 Year
  Sex: Male

DRUGS (3)
  1. OXYCONTIN [Suspect]
     Indication: NEURALGIA
     Dosage: 80 MG, Q8H, UNKNOWN
  2. OXYCODONE HCL [Concomitant]
  3. MARINOL [Concomitant]

REACTIONS (1)
  - DEATH [None]
